FAERS Safety Report 24031871 (Version 1)
Quarter: 2024Q2

REPORT INFORMATION
  Report Type: Spontaneous
  Country: US (occurrence: US)
  Receive Date: 20240629
  Receipt Date: 20240629
  Transmission Date: 20240716
  Serious: No
  Sender: FDA-Public Use
  Company Number: US-LUPIN PHARMACEUTICALS INC.-2024-05515

PATIENT
  Age: 1 Year
  Sex: Male
  Weight: 11.791 kg

DRUGS (1)
  1. CEFDINIR [Suspect]
     Active Substance: CEFDINIR
     Indication: Ear infection
     Dosage: 3.1 MILLILITER, QD
     Route: 048
     Dates: start: 20240319, end: 20240329

REACTIONS (2)
  - Recalled product administered [Unknown]
  - No adverse event [Unknown]
